FAERS Safety Report 4589498-6 (Version None)
Quarter: 2005Q1

REPORT INFORMATION
  Report Type: 
  Country: None (occurrence: None)
  Receive Date: 20050223
  Receipt Date: 20050214
  Transmission Date: 20050727
  Serious: Yes (Hospitalization, Disabling)
  Sender: FDA-Public Use
  Company Number: PHFR2005GB00900

PATIENT
  Age: 70 Year
  Sex: Female

DRUGS (2)
  1. OCTREOTIDE [Suspect]
     Dosage: 300UG/DAY
     Route: 058
     Dates: start: 20050114, end: 20050116
  2. ALENDRONATE SODIUM [Concomitant]
     Indication: OSTEOPOROSIS
     Dosage: 70MG/DAY
     Route: 048

REACTIONS (2)
  - CEREBROVASCULAR ACCIDENT [None]
  - MIGRAINE [None]
